FAERS Safety Report 12749892 (Version 4)
Quarter: 2017Q1

REPORT INFORMATION
  Report Type: Spontaneous
  Country: JP (occurrence: JP)
  Receive Date: 20160916
  Receipt Date: 20170315
  Transmission Date: 20170428
  Serious: Yes (Hospitalization, Other)
  Sender: FDA-Public Use
  Company Number: JP-009507513-1609JPN006155

PATIENT
  Age: 53 Year
  Sex: Male
  Weight: 86 kg

DRUGS (2)
  1. SINGULAIR [Suspect]
     Active Substance: MONTELUKAST SODIUM
     Indication: RHINITIS ALLERGIC
     Dosage: 10 MG, UNK
     Route: 048
     Dates: start: 20160818, end: 20160905
  2. BROMPERIDOL [Suspect]
     Active Substance: BROMPERIDOL
     Dosage: 1 MG, UNK
     Route: 048
     Dates: start: 2007, end: 20160920

REACTIONS (2)
  - Renal failure [Unknown]
  - Jaundice [Unknown]

NARRATIVE: CASE EVENT DATE: 20160827
